FAERS Safety Report 17864274 (Version 1)
Quarter: 2020Q2

REPORT INFORMATION
  Report Type: Spontaneous
  Country: AU (occurrence: AU)
  Receive Date: 20200605
  Receipt Date: 20200605
  Transmission Date: 20200714
  Serious: Yes (Death)
  Sender: FDA-Public Use
  Company Number: AU-TEVA-2020-AU-1245222

PATIENT
  Age: 67 Year
  Sex: Male

DRUGS (4)
  1. AMITRIPTYLINE [Interacting]
     Active Substance: AMITRIPTYLINE
     Indication: PRODUCT USED FOR UNKNOWN INDICATION
     Route: 065
  2. PREGABALIN. [Suspect]
     Active Substance: PREGABALIN
     Indication: PRODUCT USED FOR UNKNOWN INDICATION
     Route: 065
  3. NORTRIPTYLINE [Interacting]
     Active Substance: NORTRIPTYLINE
     Indication: PRODUCT USED FOR UNKNOWN INDICATION
     Route: 065
  4. PAROXETINE. [Interacting]
     Active Substance: PAROXETINE
     Indication: PRODUCT USED FOR UNKNOWN INDICATION
     Route: 065

REACTIONS (2)
  - Toxicity to various agents [Fatal]
  - Drug interaction [Fatal]
